FAERS Safety Report 11263103 (Version 8)
Quarter: 2016Q1

REPORT INFORMATION
  Report Type: Report from Study
  Country: US (occurrence: US)
  Receive Date: 20150710
  Receipt Date: 20160129
  Transmission Date: 20160525
  Serious: Yes (Hospitalization)
  Sender: FDA-Public Use
  Company Number: US-ACTELION-A-NJ2015-120558

PATIENT
  Age: 50 Year
  Sex: Female

DRUGS (3)
  1. REVATIO [Concomitant]
     Active Substance: SILDENAFIL CITRATE
  2. OPSUMIT [Suspect]
     Active Substance: MACITENTAN
     Indication: PULMONARY HYPERTENSION
     Dosage: 10 MG, QD
     Route: 048
     Dates: start: 20140128
  3. VELETRI [Suspect]
     Active Substance: EPOPROSTENOL
     Indication: PULMONARY HYPERTENSION
     Dosage: 25 NG/KG, PER MIN
     Route: 042
     Dates: start: 20141219

REACTIONS (14)
  - Wisdom teeth removal [Unknown]
  - Device alarm issue [Unknown]
  - Post procedural haemorrhage [Unknown]
  - Flushing [Unknown]
  - Device leakage [Unknown]
  - Malaise [Unknown]
  - Drug hypersensitivity [Unknown]
  - Catheter placement [Unknown]
  - Device related infection [Unknown]
  - Pain in jaw [Unknown]
  - Gingivitis [Unknown]
  - Musculoskeletal pain [Unknown]
  - Pulmonary arterial hypertension [Unknown]
  - Headache [Unknown]

NARRATIVE: CASE EVENT DATE: 20150702
